FAERS Safety Report 6097437-4 (Version None)
Quarter: 2009Q1

REPORT INFORMATION
  Report Type: 
  Country: None (occurrence: None)
  Receive Date: 20090227
  Receipt Date: 20080602
  Transmission Date: 20090719
  Serious: No
  Sender: FDA-Public Use
  Company Number: A0724341A

PATIENT
  Age: 45 Year
  Sex: Female

DRUGS (5)
  1. IMITREX [Suspect]
     Indication: MIGRAINE
     Dosage: 6MG MONTHLY
     Route: 058
     Dates: start: 20040101
  2. IMITREX [Concomitant]
     Route: 048
  3. ORAL CONTRACEPTIVE [Concomitant]
  4. PREMARIN [Concomitant]
  5. TEMOVATE [Concomitant]
     Route: 061

REACTIONS (3)
  - BURNING SENSATION [None]
  - INJECTION SITE IRRITATION [None]
  - PRODUCT QUALITY ISSUE [None]
